FAERS Safety Report 5412501-8 (Version None)
Quarter: 2007Q3

REPORT INFORMATION
  Report Type: 
  Country: None (occurrence: None)
  Receive Date: 20070813
  Receipt Date: 20070803
  Transmission Date: 20080115
  Serious: Yes (Life-Threatening)
  Sender: FDA-Public Use
  Company Number: A0667475A

PATIENT
  Age: 61 Year
  Sex: Female

DRUGS (4)
  1. LAMICTAL [Suspect]
     Indication: BIPOLAR DISORDER
     Dosage: 100MG TWICE PER DAY
     Route: 048
     Dates: start: 20061114, end: 20070809
  2. QUETIAPINE FUMARATE [Concomitant]
     Indication: BIPOLAR DISORDER
     Dosage: 100MG PER DAY
     Dates: start: 20060609
  3. ADVIL LIQUI-GELS [Concomitant]
  4. NAPROSYN [Concomitant]

REACTIONS (3)
  - LYMPHOID TISSUE HYPERPLASIA [None]
  - PSEUDOLYMPHOMA [None]
  - RASH MACULAR [None]
